FAERS Safety Report 8909257 (Version 2)
Quarter: 2013Q1

REPORT INFORMATION
  Report Type: Spontaneous
  Country: US (occurrence: None)
  Receive Date: 20121107
  Receipt Date: 20130131
  Transmission Date: 20140127
  Serious: Yes (Death, Hospitalization)
  Sender: FDA-Public Use
  Company Number: 2012-1180

PATIENT
  Age: 44 Year
  Sex: Female

DRUGS (5)
  1. KYPROLIS [Suspect]
     Indication: PLASMA CELL MYELOMA
  2. DIFLUCAN(FLUCONAZOLE) (FLUCONAZOLE) [Concomitant]
  3. ACYCLOVIR(ACICLOVIR) (ACICLOVIR) [Concomitant]
  4. THALIDOMIDE(THALIDOMIDE) (THALIDOMIDE) [Concomitant]
  5. DECADRON [Concomitant]

REACTIONS (19)
  - Death [None]
  - Febrile neutropenia [None]
  - Septic shock [None]
  - Sinus tachycardia [None]
  - Convulsion [None]
  - Blood pH decreased [None]
  - Serratia test positive [None]
  - Metabolic acidosis [None]
  - Renal failure acute [None]
  - Renal tubular necrosis [None]
  - Acute respiratory failure [None]
  - Multi-organ failure [None]
  - Urinary tract infection [None]
  - Plasma cell leukaemia [None]
  - Malignant neoplasm progression [None]
  - Aspartate aminotransferase increased [None]
  - Alanine aminotransferase increased [None]
  - Blood urea increased [None]
  - Blood creatinine increased [None]
